FAERS Safety Report 10449904 (Version 2)
Quarter: 2014Q4

REPORT INFORMATION
  Report Type: Spontaneous
  Country: US (occurrence: US)
  Receive Date: 20140912
  Receipt Date: 20141211
  Transmission Date: 20150528
  Serious: No
  Sender: FDA-Public Use
  Company Number: US-INCYTE CORPORATION-2014IN002150

PATIENT
  Age: 63 Year
  Sex: Female
  Weight: 59 kg

DRUGS (3)
  1. JAKAFI [Suspect]
     Active Substance: RUXOLITINIB
     Dosage: 10 MG, BID
     Route: 048
     Dates: start: 20140813
  2. JAKAFI [Suspect]
     Active Substance: RUXOLITINIB
     Indication: POLYCYTHAEMIA VERA
     Dosage: 10 MG, BID
     Route: 048
     Dates: start: 20140509, end: 20140703
  3. JAKAFI [Suspect]
     Active Substance: RUXOLITINIB
     Dosage: 20 MG IN THE AM AND 10 MG IN THE PM
     Route: 048
     Dates: start: 20140704, end: 20140812

REACTIONS (8)
  - Fatigue [Recovered/Resolved]
  - Drug dose omission [Unknown]
  - Dysuria [Recovered/Resolved]
  - Rash [Recovered/Resolved]
  - Oropharyngeal pain [Recovered/Resolved]
  - Eye irritation [Recovered/Resolved]
  - Off label use [Not Recovered/Not Resolved]
  - Full blood count decreased [Unknown]

NARRATIVE: CASE EVENT DATE: 2014
